FAERS Safety Report 9997026 (Version 1)
Quarter: 2014Q1

REPORT INFORMATION
  Report Type: Spontaneous
  Country: US (occurrence: US)
  Receive Date: 20140311
  Receipt Date: 20140311
  Transmission Date: 20141002
  Serious: No
  Sender: FDA-Public Use
  Company Number: US-GLAXOSMITHKLINE-A1055563A

PATIENT
  Age: 53 Year
  Sex: Female

DRUGS (1)
  1. NICORETTE OTC 4MG [Suspect]
     Indication: EX-TOBACCO USER
     Route: 002
     Dates: start: 20140102, end: 20140102

REACTIONS (3)
  - Pharyngeal hypoaesthesia [Unknown]
  - Hypoaesthesia oral [Unknown]
  - Malaise [Unknown]
